FAERS Safety Report 9999170 (Version 1)
Quarter: 2014Q1

REPORT INFORMATION
  Report Type: Spontaneous
  Country: IT (occurrence: IT)
  Receive Date: 20140312
  Receipt Date: 20140312
  Transmission Date: 20141002
  Serious: Yes (Other)
  Sender: FDA-Public Use
  Company Number: IT-JNJFOC-20140303530

PATIENT
  Age: 22 Year
  Sex: Male

DRUGS (2)
  1. TOPIRAMATE [Suspect]
     Indication: AUTISM
     Route: 048
  2. OLANZAPINE [Interacting]
     Indication: AUTISM
     Route: 065

REACTIONS (3)
  - Priapism [Recovered/Resolved with Sequelae]
  - Drug interaction [Unknown]
  - Off label use [Unknown]
